FAERS Safety Report 4891556-3 (Version None)
Quarter: 2006Q1

REPORT INFORMATION
  Report Type: 
  Country: None (occurrence: None)
  Receive Date: 20060125
  Receipt Date: 20051003
  Transmission Date: 20060701
  Serious: Yes (Hospitalization)
  Sender: FDA-Public Use
  Company Number: US-MERCK-0510USA02639

PATIENT
  Age: 73 Year
  Sex: Female
  Weight: 125 kg

DRUGS (1)
  1. VIOXX [Suspect]
     Indication: PAIN MANAGEMENT
     Route: 048
     Dates: start: 20010409, end: 20040901

REACTIONS (4)
  - BACK DISORDER [None]
  - BRAIN STEM INFARCTION [None]
  - INTRACRANIAL ANEURYSM [None]
  - ISCHAEMIC STROKE [None]
